FAERS Safety Report 7449238-X (Version None)
Quarter: 2011Q2

REPORT INFORMATION
  Report Type: 
  Country: None (occurrence: None)
  Receive Date: 20110502
  Receipt Date: 20110408
  Transmission Date: 20111010
  Serious: Yes (Hospitalization)
  Sender: FDA-Public Use
  Company Number: LT-BAYER-2011-030706

PATIENT
  Age: 31 Year
  Sex: Female
  Weight: 60 kg

DRUGS (4)
  1. DICLOFENAC [Suspect]
     Indication: SUICIDE ATTEMPT
     Dosage: 10 DF, ONCE
     Route: 048
  2. ACETAMINOPHEN [Suspect]
     Indication: SUICIDE ATTEMPT
     Dosage: 10 TABLETS AT ONCE
     Route: 048
  3. MYDOCALM [Suspect]
     Indication: SUICIDE ATTEMPT
     Dosage: 5-6 TABLETS AT ONCE
     Route: 048
  4. ACETYLSALICYLIC ACID SRT [Suspect]
     Indication: SUICIDE ATTEMPT
     Dosage: 5 DF, ONCE
     Route: 048

REACTIONS (3)
  - SOMNOLENCE [None]
  - VOMITING [None]
  - MUSCULAR WEAKNESS [None]
